FAERS Safety Report 8240568-0 (Version None)
Quarter: 2012Q1

REPORT INFORMATION
  Report Type: 
  Country: None (occurrence: None)
  Receive Date: 20120328
  Receipt Date: 20120319
  Transmission Date: 20120608
  Serious: Yes (Hospitalization)
  Sender: FDA-Public Use
  Company Number: NL-SANOFI-AVENTIS-200910411GDDC

PATIENT
  Age: 84 Year
  Sex: Male
  Weight: 67 kg

DRUGS (25)
  1. AFLIBERCEPT [Suspect]
     Route: 048
     Dates: start: 20080704, end: 20080704
  2. AMOXICILLIN AND CLAVULANATE POTASSIUM [Concomitant]
  3. FOSAMAX [Concomitant]
  4. LASILETTEN [Concomitant]
     Dosage: DOSE AS USED: UNK
     Dates: start: 20080624
  5. SIMVASTATIN [Concomitant]
  6. ALL OTHER THERAPEUTIC PRODUCTS [Concomitant]
  7. TAMSULOSIN HYDROCHLORIDE [Concomitant]
  8. DIFLUCAN [Concomitant]
  9. ALENDRONIC ACID [Concomitant]
  10. CHLORHEXIDINE GLUCONATE [Concomitant]
     Dosage: DOSE AS USED: UNK
     Dates: start: 20080815
  11. DOCETAXEL [Suspect]
     Route: 042
     Dates: start: 20080704, end: 20080704
  12. PREDNISOLONE [Suspect]
     Route: 048
     Dates: start: 20080704, end: 20081230
  13. LIDOCAINE [Concomitant]
  14. FLUTICASONE PROPIONATE/SALMETEROL [Concomitant]
  15. AFLIBERCEPT [Suspect]
     Route: 048
     Dates: start: 20081107, end: 20081107
  16. DOCETAXEL [Suspect]
     Route: 042
     Dates: start: 20081107, end: 20081107
  17. ASCAL [Concomitant]
  18. TAMSULOSIN HCL [Concomitant]
  19. SUCRALFATE [Concomitant]
     Dosage: DOSE AS USED: UNK
  20. SPIRIVA [Concomitant]
  21. NYSTATINE ^LABAZ^ [Concomitant]
     Dosage: DOSE AS USED: UNK
     Dates: start: 20080822
  22. ANTICHOLINERGIC AGENTS [Concomitant]
  23. ACUZIDE [Concomitant]
     Dosage: DOSE AS USED: 20/12.5 MG
  24. ZOLADEX [Concomitant]
  25. FRAGMIN [Concomitant]
     Dosage: DOSE:2500 UNIT(S)

REACTIONS (2)
  - PROTEINURIA [None]
  - ERYSIPELAS [None]
